FAERS Safety Report 14315081 (Version 1)
Quarter: 2017Q4

REPORT INFORMATION
  Report Type: Spontaneous
  Country: US (occurrence: US)
  Receive Date: 20171221
  Receipt Date: 20171221
  Transmission Date: 20180321
  Serious: Yes (Death)
  Sender: FDA-Public Use
  Company Number: US-CELGENEUS-USA-20171206994

PATIENT
  Age: 84 Year
  Sex: Male

DRUGS (1)
  1. ABRAXANE [Suspect]
     Active Substance: PACLITAXEL
     Indication: NEOPLASM MALIGNANT
     Dosage: 190 MILLIGRAM
     Route: 042
     Dates: start: 20170919, end: 20171216

REACTIONS (1)
  - Death [Fatal]

NARRATIVE: CASE EVENT DATE: 20171216
